FAERS Safety Report 10977170 (Version 1)
Quarter: 2015Q1

REPORT INFORMATION
  Report Type: Spontaneous
  Country: SA (occurrence: None)
  Receive Date: 20150330
  Receipt Date: 20150330
  Transmission Date: 20150721
  Serious: Yes (Death, Other)
  Sender: FDA-Public Use
  Company Number: FK201501487

PATIENT
  Age: 33 Year
  Sex: Male

DRUGS (7)
  1. VINBLASTINE (MANUFACTURER UNKNOWN) (VINBLASTINE SULFATE) (VINBLASTINE SULFATE) [Suspect]
     Active Substance: VINBLASTINE SULFATE
     Indication: HODGKIN^S DISEASE
  2. BLEOMYCIN [Suspect]
     Active Substance: BLEOMYCIN SULFATE
     Indication: HODGKIN^S DISEASE
  3. CISPLATIN (MANUFACTURER UNKNOWN) (CISPLATIN) (CISPLATIN) [Suspect]
     Active Substance: CISPLATIN
     Indication: HODGKIN^S DISEASE
     Dosage: 25 MG/M2, CONTINOUS INFUSION FOR 4 DAYS
     Route: 042
  4. DOXORUBICIN (MANUFACTURER UNKNOWN) (DOXORUBICIN HDYROCHLORIDE) (DOXORUBICIN HYDROCHLORIDE) [Suspect]
     Active Substance: DOXORUBICIN HYDROCHLORIDE
     Indication: HODGKIN^S DISEASE
  5. DACARBAZINE (MANUFACTURER UNKNOWN) (DACARBAZINE) (DACARBAZINE) [Suspect]
     Active Substance: DACARBAZINE
     Indication: HODGKIN^S DISEASE
  6. METHYLPREDNISONE [Suspect]
     Active Substance: METHYLPREDNISOLONE
     Indication: HODGKIN^S DISEASE
     Dosage: 250 MG, DAILY FOR 4 DAYS
  7. CYTARABINE (MANUFACTURER UNKNOWN) (CYTARABINE) (CYTARABINE) [Suspect]
     Active Substance: CYTARABINE
     Indication: HODGKIN^S DISEASE
     Dosage: ON DAY 5, INTRAVENOUS (NOT OTHERWISE SPECIFIED)
     Route: 042

REACTIONS (5)
  - Febrile neutropenia [None]
  - Klebsiella infection [None]
  - Vanishing bile duct syndrome [None]
  - Acute kidney injury [None]
  - Hepatic failure [None]
